FAERS Safety Report 9433370 (Version 2)
Quarter: 2014Q1

REPORT INFORMATION
  Report Type: Spontaneous
  Country: FR (occurrence: FR)
  Receive Date: 20130731
  Receipt Date: 20140130
  Transmission Date: 20141002
  Serious: Yes (Other)
  Sender: FDA-Public Use
  Company Number: FR-BRISTOL-MYERS SQUIBB COMPANY-19138148

PATIENT
  Age: 52 Year
  Sex: Female

DRUGS (4)
  1. REYATAZ [Suspect]
     Indication: HIV INFECTION
     Dosage: 05JUL2011
     Dates: start: 20051115, end: 20131001
  2. SUSTIVA [Suspect]
     Indication: HIV INFECTION
     Dosage: 23NOV2011
     Route: 048
     Dates: start: 20110705, end: 20131001
  3. NORVIR [Suspect]
     Indication: HIV INFECTION
     Dosage: 05JUL2011
     Route: 048
     Dates: start: 20051115, end: 20131001
  4. TRUVADA [Suspect]
     Indication: HIV INFECTION
     Route: 048
     Dates: start: 20051115

REACTIONS (1)
  - Hypercholesterolaemia [Recovered/Resolved]
